FAERS Safety Report 14000654 (Version 2)
Quarter: 2017Q4

REPORT INFORMATION
  Report Type: Spontaneous
  Country: FR (occurrence: FR)
  Receive Date: 20170922
  Receipt Date: 20171102
  Transmission Date: 20180321
  Serious: Yes (Hospitalization)
  Sender: FDA-Public Use
  Company Number: FR-PFIZER INC-2017402165

PATIENT
  Age: 35 Year
  Sex: Female

DRUGS (1)
  1. TRINORDIOL [Suspect]
     Active Substance: ETHINYL ESTRADIOL\LEVONORGESTREL
     Indication: CONTRACEPTION
     Dosage: 50-75-125 MICROGR / 30-40-30 MICROGR
     Route: 048
     Dates: start: 2001, end: 201612

REACTIONS (3)
  - Fall [Unknown]
  - Pulmonary embolism [Recovered/Resolved]
  - Deep vein thrombosis [Recovered/Resolved]

NARRATIVE: CASE EVENT DATE: 201612
